FAERS Safety Report 14255998 (Version 1)
Quarter: 2017Q4

REPORT INFORMATION
  Report Type: Spontaneous
  Country: JP (occurrence: JP)
  Receive Date: 20171206
  Receipt Date: 20171206
  Transmission Date: 20180321
  Serious: Yes (Other)
  Sender: FDA-Public Use
  Company Number: JP-PFIZER INC-2017515232

PATIENT
  Age: 3 Decade
  Sex: Female

DRUGS (1)
  1. WYPAX 0.5 [Suspect]
     Active Substance: LORAZEPAM
     Dosage: 15 MG, SINGLE
     Route: 048
     Dates: start: 20171129

REACTIONS (3)
  - Coma [Unknown]
  - Overdose [Unknown]
  - Oliguria [Unknown]

NARRATIVE: CASE EVENT DATE: 20171129
